FAERS Safety Report 20460230 (Version 2)
Quarter: 2022Q1

REPORT INFORMATION
  Report Type: Spontaneous
  Country: FR (occurrence: None)
  Receive Date: 20220211
  Receipt Date: 20220223
  Transmission Date: 20220424
  Serious: Yes (Death, Disabling)
  Sender: FDA-Public Use
  Company Number: None

PATIENT
  Age: 63 Year
  Sex: Female
  Weight: 60 kg

DRUGS (7)
  1. STALEVO [Suspect]
     Active Substance: CARBIDOPA\ENTACAPONE\LEVODOPA
     Indication: Parkinsonism
     Dosage: 100MG X3/D
     Route: 065
  2. STALEVO [Suspect]
     Active Substance: CARBIDOPA\ENTACAPONE\LEVODOPA
     Dosage: DOSE DECREASE TO 100MG DAILY
     Route: 065
  3. MIDODRINE HYDROCHLORIDE [Suspect]
     Active Substance: MIDODRINE HYDROCHLORIDE
     Indication: Orthostatic hypotension
     Dosage: STRENGTH: 2.5 MG
     Route: 065
  4. FLUOXETINE HYDROCHLORIDE [Suspect]
     Active Substance: FLUOXETINE HYDROCHLORIDE
     Indication: Depression
     Route: 065
  5. TRAMADOL HYDROCHLORIDE [Suspect]
     Active Substance: TRAMADOL HYDROCHLORIDE
     Indication: Pain in extremity
     Route: 065
     Dates: start: 202111
  6. COMIRNATY [Suspect]
     Active Substance: TOZINAMERAN
     Indication: COVID-19 immunisation
     Dosage: D1, COVID-19 MRNA VACCINE (MODIFIED NUCLEOSIDE), IN LEFT DELTOID AT HOME AROUND 8 PM
     Route: 030
     Dates: start: 20211209, end: 20211209
  7. LACTULOSE [Concomitant]
     Active Substance: LACTULOSE
     Indication: Constipation
     Dosage: STRENGTH: 10 G/15 ML
     Route: 065

REACTIONS (3)
  - Bradycardia [Fatal]
  - Death [Fatal]
  - Multiple system atrophy [Unknown]

NARRATIVE: CASE EVENT DATE: 20211109
